FAERS Safety Report 25748476 (Version 2)
Quarter: 2025Q3

REPORT INFORMATION
  Report Type: Spontaneous
  Country: US (occurrence: US)
  Receive Date: 20250902
  Receipt Date: 20250912
  Transmission Date: 20251020
  Serious: No
  Sender: ROCHE
  Company Number: US-ROCHE-10000372542

PATIENT
  Age: 53 Year
  Sex: Female
  Weight: 99.79 kg

DRUGS (2)
  1. XOLAIR [Suspect]
     Active Substance: OMALIZUMAB
     Indication: Asthma
     Dosage: STRENGTH:150MG/ML
     Route: 058
     Dates: start: 202505
  2. XOLAIR [Suspect]
     Active Substance: OMALIZUMAB
     Indication: Hypersensitivity

REACTIONS (4)
  - Accidental underdose [Unknown]
  - Device issue [Unknown]
  - Accidental exposure to product [Unknown]
  - No adverse event [Unknown]

NARRATIVE: CASE EVENT DATE: 20250812
